FAERS Safety Report 7549519-5 (Version None)
Quarter: 2011Q2

REPORT INFORMATION
  Report Type: 
  Country: None (occurrence: None)
  Receive Date: 20110615
  Receipt Date: 20110606
  Transmission Date: 20111010
  Serious: Yes (Hospitalization)
  Sender: FDA-Public Use
  Company Number: FR-ASTRAZENECA-2011SE35420

PATIENT
  Age: 30 Year
  Sex: Female

DRUGS (7)
  1. DIANE [Suspect]
     Dates: start: 20110215, end: 20110306
  2. SEROQUEL [Suspect]
     Route: 048
     Dates: start: 20110204, end: 20110205
  3. PRAZEPAM [Suspect]
     Dosage: 15 MG / ML
     Route: 048
     Dates: start: 20110203, end: 20110309
  4. SEROQUEL [Suspect]
     Route: 048
     Dates: start: 20110205, end: 20110307
  5. SEROQUEL [Suspect]
     Route: 048
     Dates: start: 20110203, end: 20110204
  6. SEROQUEL [Suspect]
     Indication: PSYCHOTIC DISORDER
     Route: 048
     Dates: start: 20110201, end: 20110202
  7. SEROQUEL [Suspect]
     Route: 048
     Dates: start: 20110202, end: 20110203

REACTIONS (3)
  - BLOOD BILIRUBIN INCREASED [None]
  - TRANSAMINASES INCREASED [None]
  - JAUNDICE [None]
